FAERS Safety Report 4596685-X (Version None)
Quarter: 2005Q1

REPORT INFORMATION
  Report Type: 
  Country: None (occurrence: None)
  Receive Date: 20050228
  Receipt Date: 20050215
  Transmission Date: 20050727
  Serious: Yes (Hospitalization, Other)
  Sender: FDA-Public Use
  Company Number: 2005024105

PATIENT
  Age: 83 Year
  Sex: Male
  Weight: 76 kg

DRUGS (1)
  1. VIAGRA [Suspect]
     Indication: ERECTILE DYSFUNCTION
     Dosage: 50 MG (50 MG), ORAL
     Route: 048
     Dates: start: 20000417, end: 20050124

REACTIONS (9)
  - DIZZINESS [None]
  - DRUG EFFECT DECREASED [None]
  - EXTRANODAL MARGINAL ZONE B-CELL LYMPHOMA (MALT TYPE) [None]
  - GAIT DISTURBANCE [None]
  - GASTROINTESTINAL HAEMORRHAGE [None]
  - HYPOTENSION [None]
  - IRON DEFICIENCY ANAEMIA [None]
  - PROSTATE CANCER [None]
  - ULCER [None]
